FAERS Safety Report 5034665-0 (Version None)
Quarter: 2006Q2

REPORT INFORMATION
  Report Type: 
  Country: None (occurrence: None)
  Receive Date: 20060621
  Receipt Date: 20060530
  Transmission Date: 20061013
  Serious: Yes (Death)
  Sender: FDA-Public Use
  Company Number: ES200606001265

PATIENT
  Age: 60 Year
  Sex: Male

DRUGS (3)
  1. ZYPREXA [Suspect]
     Indication: MANIA
     Dosage: 20 MG, ORAL
     Route: 048
     Dates: start: 20060201
  2. VALIUM [Concomitant]
  3. NEURONTIN [Concomitant]

REACTIONS (1)
  - CARDIAC ARREST [None]
